FAERS Safety Report 5876531-4 (Version None)
Quarter: 2008Q3

REPORT INFORMATION
  Report Type: 
  Country: None (occurrence: None)
  Receive Date: 20080910
  Receipt Date: 20080908
  Transmission Date: 20090109
  Serious: Yes (Other)
  Sender: FDA-Public Use
  Company Number: A0737675A

PATIENT
  Sex: Female

DRUGS (1)
  1. ALLI [Suspect]
     Indication: DRUG USE FOR UNKNOWN INDICATION

REACTIONS (14)
  - ABDOMINAL PAIN UPPER [None]
  - ABNORMAL FAECES [None]
  - DECREASED APPETITE [None]
  - DEPRESSION [None]
  - DISTRACTIBILITY [None]
  - DYSGEUSIA [None]
  - FATIGUE [None]
  - GASTROENTERITIS VIRAL [None]
  - HUNGER [None]
  - HYPERPHAGIA [None]
  - MALAISE [None]
  - NEPHROLITHIASIS [None]
  - SINUS DISORDER [None]
  - WEIGHT INCREASED [None]
